FAERS Safety Report 14913467 (Version 2)
Quarter: 2018Q2

REPORT INFORMATION
  Report Type: Spontaneous
  Country: CL (occurrence: CL)
  Receive Date: 20180518
  Receipt Date: 20180530
  Transmission Date: 20180711
  Serious: Yes (Hospitalization)
  Sender: FDA-Public Use
  Company Number: CL-PFIZER INC-2018199046

PATIENT
  Age: 23 Year
  Sex: Female
  Weight: 80 kg

DRUGS (4)
  1. DIETHYL PHTHALATE [Concomitant]
     Dosage: UNK
  2. FENTANYL. [Concomitant]
     Active Substance: FENTANYL
     Indication: SPINAL ANAESTHESIA
     Dosage: 15 MG, SINGLE (L3-L4 INTERSPEACE)
     Route: 037
  3. BUPIVAN [Suspect]
     Active Substance: BUPIVACAINE HYDROCHLORIDE
     Indication: SPINAL ANAESTHESIA
     Dosage: 7.5 MG, SINGLE (7.5MG OF HYPERBARIC BUPIVACAINE 0.75% WITH 15UG OF FENTANYL)(L3-L4 INTERSPEACE)
     Route: 037
  4. ALCOHOL. [Concomitant]
     Active Substance: ALCOHOL
     Dosage: UNK

REACTIONS (1)
  - Cauda equina syndrome [Recovering/Resolving]
